FAERS Safety Report 5772425-3 (Version None)
Quarter: 2008Q2

REPORT INFORMATION
  Report Type: 
  Country: None (occurrence: None)
  Receive Date: 20080613
  Receipt Date: 20080602
  Transmission Date: 20081010
  Serious: Yes (Hospitalization)
  Sender: FDA-Public Use
  Company Number: US-ELI_LILLY_AND_COMPANY-US200804002902

PATIENT
  Sex: Female

DRUGS (8)
  1. HUMALOG [Suspect]
     Indication: DIABETES MELLITUS
  2. LANTUS [Concomitant]
     Dosage: 30 U, EACH MORNING
  3. METOPROLOL [Concomitant]
     Dosage: 100 MG, DAILY (1/D)
  4. GABAPENTIN [Concomitant]
     Dosage: 300 MG, AS NEEDED
  5. LEVOTHYROXINE SODIUM [Concomitant]
     Dosage: UNK MEQ, DAILY (1/D)
  6. LISINOPRIL AND HYDROCHLOROTHIAZIDE [Concomitant]
     Dosage: UNK, DAILY (1/D)
  7. SIMVASTATIN [Concomitant]
     Dosage: 20 MG, DAILY (1/D)
  8. DIOVEN [Concomitant]
     Dosage: 320 MG, DAILY (1/D)

REACTIONS (4)
  - BLOOD GLUCOSE INCREASED [None]
  - CHOLELITHIASIS [None]
  - INJECTION SITE IRRITATION [None]
  - WEIGHT INCREASED [None]
